FAERS Safety Report 6510235-X (Version None)
Quarter: 2009Q4

REPORT INFORMATION
  Report Type: 
  Country: None (occurrence: None)
  Receive Date: 20091222
  Receipt Date: 20091221
  Transmission Date: 20100525
  Serious: Yes (Other)
  Sender: FDA-Public Use
  Company Number: DE-SANOFI-AVENTIS-2009SA009989

PATIENT
  Sex: Female
  Weight: 80 kg

DRUGS (1)
  1. LANTUS [Suspect]
     Dosage: DOSE REPORTED: ^40^
     Route: 058
     Dates: end: 20090701

REACTIONS (2)
  - BREAST CANCER RECURRENT [None]
  - METASTASES TO LIVER [None]
